FAERS Safety Report 15387639 (Version 6)
Quarter: 2019Q1

REPORT INFORMATION
  Report Type: Spontaneous
  Country: US (occurrence: US)
  Receive Date: 20180914
  Receipt Date: 20190212
  Transmission Date: 20190417
  Serious: Yes (Death, Hospitalization)
  Sender: FDA-Public Use
  Company Number: US-ACTELION-A-NJ2018-178806

PATIENT
  Age: 70 Year
  Sex: Female

DRUGS (1)
  1. OPSUMIT [Suspect]
     Active Substance: MACITENTAN
     Indication: PULMONARY ARTERIAL HYPERTENSION
     Dosage: 10 MG, QD
     Route: 048
     Dates: start: 20170919

REACTIONS (7)
  - Death [Fatal]
  - Memory impairment [Unknown]
  - Product dose omission [Unknown]
  - Neurological symptom [Unknown]
  - Cerebrovascular accident [Unknown]
  - Hospitalisation [Unknown]
  - Ill-defined disorder [Unknown]
